FAERS Safety Report 9182398 (Version 1)
Quarter: 2012Q4

REPORT INFORMATION
  Report Type: 
  Country: US (occurrence: US)
  Receive Date: 20121030
  Receipt Date: 20121030
  Transmission Date: 20130627
  Serious: No
  Sender: FDA-Public Use
  Company Number: US-GLAXOSMITHKLINE-A0945819A

PATIENT
  Age: 44 Year
  Sex: Male

DRUGS (1)
  1. SUMATRIPTAN SUCCINATE [Suspect]
     Indication: CLUSTER HEADACHE
     Dosage: 3SPR As required
     Route: 045
     Dates: start: 200908, end: 200908

REACTIONS (6)
  - Malaise [Recovered/Resolved]
  - Hyperhidrosis [Unknown]
  - Skin discolouration [Unknown]
  - Headache [Unknown]
  - Asthenia [Unknown]
  - Feeling abnormal [Unknown]
